FAERS Safety Report 19973016 (Version 1)
Quarter: 2021Q4

REPORT INFORMATION
  Report Type: Spontaneous
  Country: NO (occurrence: NO)
  Receive Date: 20211020
  Receipt Date: 20211020
  Transmission Date: 20220303
  Serious: Yes (Death)
  Sender: FDA-Public Use
  Company Number: None

PATIENT
  Age: 84 Year
  Sex: Male

DRUGS (11)
  1. RITUXIMAB [Suspect]
     Active Substance: RITUXIMAB
     Indication: Multifocal motor neuropathy
     Dosage: SINGEL INFUSION.?INFUSION NO. TWO, LAST INFUSION OCT/2020.?MOST RECENT DOSE PRIOR TO AE 02/JUN/2021
     Route: 041
     Dates: start: 20210602
  2. COMIRNATY [Suspect]
     Active Substance: TOZINAMERAN
     Indication: Immunisation
     Dosage: DOSE IN SERIES NO.: 2
     Route: 030
     Dates: start: 20210428
  3. COMIRNATY [Suspect]
     Active Substance: TOZINAMERAN
     Dosage: DOSE IN SERIES NO.: 1
     Route: 030
     Dates: start: 20210317
  4. OCTAGAM IMMUNE GLOBULIN (HUMAN) [Suspect]
     Active Substance: HUMAN IMMUNOGLOBULIN G
     Indication: Multifocal motor neuropathy
     Dosage: SINGEL INFUSION APPROXIMATELY EVERY FOURTH WEEK. ?INFUSION NO. 18.?MOST RECENT DOSE PRIOR TO AE 01/J
     Route: 065
     Dates: start: 20210601
  5. PRAVASTATIN [Concomitant]
     Active Substance: PRAVASTATIN
  6. CETIRIZINE HYDROCHLORIDE [Concomitant]
     Active Substance: CETIRIZINE HYDROCHLORIDE
     Indication: Premedication
     Dosage: PREMEDICATION BEFORE RITUXIMAB TREATMENT.
  7. SOLU-MEDROL [Concomitant]
     Active Substance: METHYLPREDNISOLONE SODIUM SUCCINATE
     Indication: Premedication
     Dosage: PREMEDICATION BEFORE RITUXIMAB TREATMENT.
  8. ENOXAPARIN [Concomitant]
     Active Substance: ENOXAPARIN
     Indication: Thrombosis prophylaxis
     Dosage: ACCORDING TO GUIDELINES IN CONJUGATION WITH THE OCTAGAM TREATMENT.
  9. ASPIRIN\MAGNESIUM OXIDE [Concomitant]
     Active Substance: ASPIRIN\MAGNESIUM OXIDE
  10. SODIUM PICOSULFATE [Concomitant]
     Active Substance: SODIUM PICOSULFATE
  11. PARACET (NORWAY) [Concomitant]
     Indication: Premedication
     Dosage: PREMEDICATION BEFORE RITUXIMAB INFUSION.
     Route: 048

REACTIONS (1)
  - Cardiac arrest [Fatal]

NARRATIVE: CASE EVENT DATE: 20210602
